FAERS Safety Report 17456394 (Version 1)
Quarter: 2020Q1

REPORT INFORMATION
  Report Type: Spontaneous
  Country: FR (occurrence: FR)
  Receive Date: 20200225
  Receipt Date: 20200225
  Transmission Date: 20200409
  Serious: Yes (Hospitalization)
  Sender: FDA-Public Use
  Company Number: FR-PFIZER INC-2020077273

PATIENT
  Age: 89 Year
  Sex: Male
  Weight: 70 kg

DRUGS (10)
  1. TUSSIPAX [CODEINE;ETHYLMORPHINE HYDROCHLORIDE] [Concomitant]
     Active Substance: CODEINE\ETHYLMORPHINE HYDROCHLORIDE
     Dosage: UNK
  2. CEFTRIAXONE. [Concomitant]
     Active Substance: CEFTRIAXONE
     Dosage: UNK
  3. IBUPROFEN. [Suspect]
     Active Substance: IBUPROFEN
     Dosage: 1200 MG, DAILY
     Route: 048
     Dates: end: 20200120
  4. RHINOTROPHYL [Concomitant]
     Active Substance: FRAMYCETIN\MONOETHANOLAMINE
     Dosage: UNK
  5. FUROSEMIDE. [Concomitant]
     Active Substance: FUROSEMIDE
     Dosage: UNK
  6. BISOCE [Concomitant]
     Active Substance: BISOPROLOL
     Dosage: UNK
  7. LERCAN [Concomitant]
     Active Substance: LERCANIDIPINE
     Dosage: UNK
  8. REPAGLINIDE. [Concomitant]
     Active Substance: REPAGLINIDE
     Dosage: UNK
  9. CALYPTOL [CINEOLE;PINUS SPP. OIL;ROSMARINUS OFFICINALIS OIL;TERPINEOL; [Concomitant]
     Dosage: UNK
  10. ENTRESTO [Concomitant]
     Active Substance: SACUBITRIL\VALSARTAN
     Dosage: UNK

REACTIONS (2)
  - Haematemesis [Recovered/Resolved]
  - Shock haemorrhagic [Recovering/Resolving]

NARRATIVE: CASE EVENT DATE: 20200120
